FAERS Safety Report 7038288-3 (Version None)
Quarter: 2010Q4

REPORT INFORMATION
  Report Type: 
  Country: None (occurrence: None)
  Receive Date: 20101011
  Receipt Date: 20091104
  Transmission Date: 20110411
  Serious: Yes (Hospitalization)
  Sender: FDA-Public Use
  Company Number: US-PFIZER INC-2009293669

PATIENT
  Age: 15 Year
  Sex: Male
  Weight: 35 kg

DRUGS (1)
  1. NEURONTIN [Suspect]
     Dosage: 8 ML, 3X/DAY
     Route: 048
     Dates: start: 20090101

REACTIONS (1)
  - DIARRHOEA [None]
